FAERS Safety Report 5973854-5 (Version None)
Quarter: 2008Q4

REPORT INFORMATION
  Report Type: 
  Country: None (occurrence: None)
  Receive Date: 20081201
  Receipt Date: 20081119
  Transmission Date: 20090506
  Serious: Yes (Death)
  Sender: FDA-Public Use
  Company Number: JP-ROCHE-599468

PATIENT
  Age: 55 Year

DRUGS (2)
  1. XELODA [Suspect]
     Indication: BREAST CANCER METASTATIC
     Dosage: DRUG NAME REPORTED AS: XELODA 300.
     Route: 048
     Dates: start: 20051201
  2. TAXOL [Concomitant]
     Route: 041
     Dates: start: 20051201

REACTIONS (1)
  - DISEASE PROGRESSION [None]
